FAERS Safety Report 21022344 (Version 1)
Quarter: 2022Q2

REPORT INFORMATION
  Report Type: Spontaneous
  Country: US (occurrence: US)
  Receive Date: 20220629
  Receipt Date: 20220629
  Transmission Date: 20220721
  Serious: No
  Sender: FDA-Public Use
  Company Number: US-PFIZER INC-PV202200010611

PATIENT
  Sex: Female

DRUGS (1)
  1. DETROL LA [Suspect]
     Active Substance: TOLTERODINE TARTRATE
     Dosage: 4 MG
     Dates: start: 2013

REACTIONS (4)
  - Chest pain [Recovered/Resolved]
  - Oropharyngeal pain [Recovered/Resolved]
  - Extrasystoles [Recovered/Resolved]
  - Hypertension [Recovered/Resolved]
